FAERS Safety Report 21134727 (Version 1)
Quarter: 2022Q3

REPORT INFORMATION
  Report Type: Spontaneous
  Country: US (occurrence: US)
  Receive Date: 20220727
  Receipt Date: 20220727
  Transmission Date: 20221027
  Serious: Yes (Other)
  Sender: FDA-Public Use
  Company Number: US-ABBVIE-22K-163-4482629-00

PATIENT
  Sex: Female

DRUGS (1)
  1. IMBRUVICA [Suspect]
     Active Substance: IBRUTINIB
     Indication: Product used for unknown indication
     Route: 048
     Dates: start: 201604, end: 202003

REACTIONS (5)
  - Pneumothorax [Unknown]
  - Richter^s syndrome [Unknown]
  - Pleural effusion [Unknown]
  - Heart rate abnormal [Unknown]
  - Petechiae [Recovered/Resolved]
